FAERS Safety Report 9333357 (Version 1)
Quarter: 2013Q2

REPORT INFORMATION
  Report Type: Spontaneous
  Country: US (occurrence: US)
  Receive Date: 20130606
  Receipt Date: 20130606
  Transmission Date: 20140414
  Serious: Yes (Other)
  Sender: FDA-Public Use
  Company Number: US-MILLENNIUM PHARMACEUTICALS, INC.-2013-04211

PATIENT
  Age: 60 Year
  Sex: Male

DRUGS (25)
  1. VELCADE [Suspect]
     Indication: PLASMA CELL MYELOMA
     Dosage: 1 MG/M2, CYCLIC
     Route: 065
  2. VELCADE [Suspect]
     Dosage: UNK
     Route: 065
  3. DEXAMETHASONE [Suspect]
     Indication: PLASMA CELL MYELOMA
     Dosage: 40 MG, CYCLIC
     Route: 065
  4. DEXAMETHASONE [Suspect]
     Dosage: UNK
     Route: 065
  5. THALIDOMIDE [Suspect]
     Indication: PLASMA CELL MYELOMA
     Dosage: 200 MG, CYCLIC
     Route: 065
  6. THALIDOMIDE [Suspect]
     Dosage: UNK
     Route: 065
  7. CISPLATIN [Suspect]
     Indication: PLASMA CELL MYELOMA
     Dosage: 10 MG/M2, CYCLIC
     Route: 041
  8. CISPLATIN [Suspect]
     Dosage: UNK
     Route: 065
  9. ADRIAMYCIN /00330901/ [Suspect]
     Indication: PLASMA CELL MYELOMA
     Dosage: 10 MG/M2, CYCLIC
     Route: 041
  10. CYCLOPHOSPHAMIDE [Suspect]
     Indication: PLASMA CELL MYELOMA
     Dosage: 400 MG/M2, CYCLIC
     Route: 041
  11. ETOPOSIDE [Suspect]
     Indication: PLASMA CELL MYELOMA
     Dosage: 40 MG/M2, CYCLIC
     Route: 041
  12. ETOPOSIDE [Suspect]
     Dosage: UNK
     Route: 065
  13. FILGRASTIM [Suspect]
     Indication: PLASMA CELL MYELOMA
     Dosage: 8 MG/KG, UNK
     Route: 065
  14. MELPHALAN [Suspect]
     Indication: PLASMA CELL MYELOMA
     Dosage: 140 MG/M2, CYCLIC
     Route: 065
  15. CARMUSTINE [Suspect]
     Indication: PLASMA CELL MYELOMA
     Route: 065
  16. ARA-C [Suspect]
     Indication: PLASMA CELL MYELOMA
     Route: 065
  17. SIROLIMUS [Suspect]
     Indication: PLASMA CELL MYELOMA
     Route: 065
  18. TRUVADA                            /01778501/ [Concomitant]
     Indication: HIV INFECTION
  19. DIDANOSINE [Concomitant]
     Indication: HIV INFECTION
  20. RITONAVIR [Concomitant]
     Indication: HIV INFECTION
  21. ATAZANAVIR [Concomitant]
     Indication: HIV INFECTION
  22. SULFAMETOXAZOL/TRIMETOPRIM [Concomitant]
     Indication: ANTIFUNGAL PROPHYLAXIS
  23. LEVOFLOXACIN [Concomitant]
     Indication: PROPHYLAXIS
  24. FLUCONAZOLE [Concomitant]
     Indication: PROPHYLAXIS
  25. ACYCLOVIR                          /00587301/ [Concomitant]
     Indication: PROPHYLAXIS

REACTIONS (3)
  - Clostridium difficile colitis [Recovering/Resolving]
  - Cytomegalovirus infection [Recovering/Resolving]
  - Enterococcal bacteraemia [Unknown]
